FAERS Safety Report 17639215 (Version 1)
Quarter: 2020Q2

REPORT INFORMATION
  Report Type: Spontaneous
  Country: ES (occurrence: ES)
  Receive Date: 20200407
  Receipt Date: 20200407
  Transmission Date: 20200713
  Serious: Yes (Death, Hospitalization)
  Sender: FDA-Public Use
  Company Number: ES-TEVA-2020-ES-1219974

PATIENT
  Age: 83 Year
  Sex: Male

DRUGS (1)
  1. METFORMINA (1359A) [Suspect]
     Active Substance: METFORMIN HYDROCHLORIDE
     Indication: DIABETES MELLITUS
     Dosage: 850 MG
     Route: 048
     Dates: start: 20111004, end: 20190828

REACTIONS (1)
  - Lactic acidosis [Fatal]

NARRATIVE: CASE EVENT DATE: 20190828
